FAERS Safety Report 6738197-0 (Version None)
Quarter: 2010Q2

REPORT INFORMATION
  Report Type: 
  Country: None (occurrence: None)
  Receive Date: 20100524
  Receipt Date: 20100514
  Transmission Date: 20101027
  Serious: Yes (Hospitalization)
  Sender: FDA-Public Use
  Company Number: A0730955A

PATIENT
  Age: 62 Year
  Sex: Male
  Weight: 113.6 kg

DRUGS (12)
  1. AVANDIA [Suspect]
     Indication: TYPE 2 DIABETES MELLITUS
     Dosage: 8MG PER DAY
     Route: 048
     Dates: start: 20040101, end: 20070101
  2. LOTREL [Concomitant]
  3. GLUCOPHAGE [Concomitant]
     Dates: start: 20030101, end: 20050101
  4. METFORMIN [Concomitant]
     Dates: start: 20030101, end: 20050101
  5. GLUCOTROL XL [Concomitant]
     Dates: start: 20050101, end: 20070101
  6. SIMVASTATIN [Concomitant]
  7. TOPROL-XL [Concomitant]
  8. ZETIA [Concomitant]
  9. FUROSEMIDE [Concomitant]
  10. KLOR-CON [Concomitant]
  11. CARDURA [Concomitant]
  12. ZOCOR [Concomitant]

REACTIONS (3)
  - CEREBROVASCULAR ACCIDENT [None]
  - PULMONARY HYPERTENSION [None]
  - TRANSIENT ISCHAEMIC ATTACK [None]
